FAERS Safety Report 7964223-7 (Version None)
Quarter: 2011Q4

REPORT INFORMATION
  Report Type: 
  Country: None (occurrence: None)
  Receive Date: 20111208
  Receipt Date: 20111205
  Transmission Date: 20120403
  Serious: Yes (Other)
  Sender: FDA-Public Use
  Company Number: US-AMGEN-USASP2011011308

PATIENT
  Age: 69 Year
  Sex: Female
  Weight: 62.585 kg

DRUGS (8)
  1. PREDNISONE TAB [Concomitant]
     Indication: IDIOPATHIC THROMBOCYTOPENIC PURPURA
  2. LIPITOR [Concomitant]
     Dosage: 20 MG, UNK
     Dates: start: 20071204
  3. POTASSIUM                          /00031402/ [Concomitant]
     Dosage: 20 MEQ, UNK
     Dates: start: 20080909
  4. HYDROCHLOROTHIAZIDE [Concomitant]
     Dosage: 12.5 UNK, UNK
     Dates: start: 20071204
  5. NPLATE [Suspect]
     Indication: IDIOPATHIC THROMBOCYTOPENIC PURPURA
     Dosage: 2 MUG/KG, UNK
     Dates: start: 20090908
  6. TENORMIN [Concomitant]
     Dosage: 50 MG, UNK
     Dates: start: 20071204
  7. FOSAMAX [Concomitant]
     Dosage: 70 MG, UNK
     Dates: start: 20071204
  8. RITUXIMAB [Concomitant]
     Indication: IDIOPATHIC THROMBOCYTOPENIC PURPURA

REACTIONS (2)
  - MARROW HYPERPLASIA [None]
  - BIOPSY BONE MARROW ABNORMAL [None]
